FAERS Safety Report 24183540 (Version 1)
Quarter: 2024Q3

REPORT INFORMATION
  Report Type: Spontaneous
  Country: HK (occurrence: HK)
  Receive Date: 20240807
  Receipt Date: 20240807
  Transmission Date: 20241016
  Serious: Yes (Death)
  Sender: MYLAN
  Company Number: HK-MYLANLABS-2024M1073441

PATIENT
  Sex: Male

DRUGS (1)
  1. NORVASC [Suspect]
     Active Substance: AMLODIPINE BESYLATE
     Indication: Product used for unknown indication
     Dosage: UNK (UNSPECIFIED DURATIONS)
     Route: 065

REACTIONS (1)
  - Death [Fatal]
